FAERS Safety Report 6055026-1 (Version None)
Quarter: 2009Q1

REPORT INFORMATION
  Report Type: 
  Country: None (occurrence: None)
  Receive Date: 20090122
  Receipt Date: 20090120
  Transmission Date: 20090719
  Serious: Yes (Death, Hospitalization)
  Sender: FDA-Public Use
  Company Number: GRT 2008-13923

PATIENT
  Age: 67 Year
  Sex: Male

DRUGS (2)
  1. LIDOCAINE [Suspect]
     Dosage: 1 PATCH A DAY
  2. TRAMADOL HCL [Concomitant]

REACTIONS (3)
  - APPLICATION SITE ERYTHEMA [None]
  - APPLICATION SITE OEDEMA [None]
  - RASH GENERALISED [None]
